FAERS Safety Report 17541194 (Version 1)
Quarter: 2020Q1

REPORT INFORMATION
  Report Type: Spontaneous
  Country: PT (occurrence: PT)
  Receive Date: 20200313
  Receipt Date: 20200313
  Transmission Date: 20200409
  Serious: Yes (Other)
  Sender: FDA-Public Use
  Company Number: PT-SA-2020SA064948

PATIENT
  Age: 61 Year
  Sex: Female

DRUGS (10)
  1. TACROLIMUS. [Concomitant]
     Active Substance: TACROLIMUS
  2. ANTI-THYMOCYTE GLOBULIN (RABBIT) NOS [Suspect]
     Active Substance: LAPINE T-LYMPHOCYTE IMMUNE GLOBULIN
     Indication: IMMUNOSUPPRESSION
     Dosage: 1230MG TOTAL DOSE IN 7 DAYS
     Route: 042
     Dates: start: 20160210, end: 20160217
  3. INSULIN GLARGINE [Concomitant]
     Active Substance: INSULIN GLARGINE
  4. NYSTATIN. [Concomitant]
     Active Substance: NYSTATIN
  5. PREDNISOLONE. [Concomitant]
     Active Substance: PREDNISOLONE
  6. VALGANCICLOVIR. [Concomitant]
     Active Substance: VALGANCICLOVIR
  7. CIPROFLOXACIN. [Concomitant]
     Active Substance: CIPROFLOXACIN
     Dosage: 8 DAYS
  8. MYCOPHENOLATE MOFETIL. [Concomitant]
     Active Substance: MYCOPHENOLATE MOFETIL
  9. NIFEDIPINE. [Concomitant]
     Active Substance: NIFEDIPINE
  10. EPOETIN BETA [Concomitant]
     Active Substance: ERYTHROPOIETIN

REACTIONS (1)
  - Haemolytic anaemia [Recovered/Resolved]

NARRATIVE: CASE EVENT DATE: 20160212
